FAERS Safety Report 15075151 (Version 1)
Quarter: 2018Q2

REPORT INFORMATION
  Report Type: Report from Study
  Country: US (occurrence: US)
  Receive Date: 20180627
  Receipt Date: 20180627
  Transmission Date: 20180711
  Serious: No
  Sender: FDA-Public Use
  Company Number: US-SAOL THERAPEUTICS-2018SAO00015

PATIENT
  Age: 59 Year
  Sex: Female

DRUGS (12)
  1. COMPOUNDED BACLOFEN [Suspect]
     Active Substance: BACLOFEN
     Dosage: 123.73 ?G, \DAY
     Route: 037
     Dates: start: 20150827, end: 20151119
  2. COMPOUNDED BACLOFEN [Suspect]
     Active Substance: BACLOFEN
     Dosage: 117.62 ?G, \DAY
     Route: 037
     Dates: start: 20151119
  3. DILAUDID [Suspect]
     Active Substance: HYDROMORPHONE HYDROCHLORIDE
     Dosage: 3.380 MG, \DAY; MAX DOSE
     Route: 037
     Dates: start: 20150827, end: 20151119
  4. DILAUDID [Suspect]
     Active Substance: HYDROMORPHONE HYDROCHLORIDE
     Dosage: 3.272 MG, \DAY; MAX DOSE
     Route: 037
     Dates: start: 20151119
  5. BUPIVACAINE. [Suspect]
     Active Substance: BUPIVACAINE
     Dosage: 5.499 MG, \DAY
     Route: 037
     Dates: start: 20150827, end: 20151119
  6. BUPIVACAINE. [Suspect]
     Active Substance: BUPIVACAINE
     Dosage: 8.181 MG, \DAY; MAX DOSE
     Route: 037
     Dates: start: 20151119
  7. COMPOUNDED BACLOFEN [Suspect]
     Active Substance: BACLOFEN
     Dosage: 184.07 ?G, \DAY; MAX DOSE
     Route: 037
     Dates: start: 20151119
  8. DILAUDID [Suspect]
     Active Substance: HYDROMORPHONE HYDROCHLORIDE
     Dosage: 2.199 MG, \DAY
     Route: 037
     Dates: start: 20150827, end: 20151119
  9. BUPIVACAINE. [Suspect]
     Active Substance: BUPIVACAINE
     Dosage: 5.227 MG, \DAY
     Route: 037
     Dates: start: 20151119
  10. BUPIVACAINE. [Suspect]
     Active Substance: BUPIVACAINE
     Dosage: 8.450 MG, \DAY; MAX DOSE
     Route: 037
     Dates: start: 20150827, end: 20151119
  11. DILAUDID [Suspect]
     Active Substance: HYDROMORPHONE HYDROCHLORIDE
     Dosage: 2.091 MG, \DAY
     Route: 037
     Dates: start: 20151119
  12. COMPOUNDED BACLOFEN [Suspect]
     Active Substance: BACLOFEN
     Dosage: 190.14 ?G, \DAY; MAX DOSE
     Route: 037
     Dates: start: 20150827, end: 20151119

REACTIONS (2)
  - Dizziness [Recovered/Resolved]
  - Amnesia [Recovered/Resolved]

NARRATIVE: CASE EVENT DATE: 20151119
